FAERS Safety Report 23914432 (Version 1)
Quarter: 2024Q2

REPORT INFORMATION
  Report Type: Spontaneous
  Country: IN (occurrence: IN)
  Receive Date: 20240529
  Receipt Date: 20240529
  Transmission Date: 20240716
  Serious: Yes (Hospitalization, Other)
  Sender: FDA-Public Use
  Company Number: IN-SUN PHARMACEUTICAL INDUSTRIES LTD-2024R1-447933

PATIENT
  Age: 59 Year
  Sex: Male

DRUGS (4)
  1. CEFUROXIME [Suspect]
     Active Substance: CEFUROXIME
     Indication: Intervertebral discitis
     Dosage: 1.5 GRAM, 8 HOURLY
     Route: 042
  2. SODIUM CHLORIDE [Suspect]
     Active Substance: SODIUM CHLORIDE
     Indication: Intervertebral discitis
     Dosage: UNK
     Route: 065
  3. DEXAMETHASONE [Suspect]
     Active Substance: DEXAMETHASONE
     Indication: Intervertebral discitis
     Dosage: 8 MILLIGRAM, BID (12 HOURLY)
     Route: 042
  4. DICLOFENAC [Suspect]
     Active Substance: DICLOFENAC
     Indication: Intervertebral discitis
     Dosage: UNK (75 MG IN 100 ML NORMAL SALINE)
     Route: 065

REACTIONS (1)
  - Drug resistance [Unknown]
